FAERS Safety Report 5859387-5 (Version None)
Quarter: 2008Q3

REPORT INFORMATION
  Report Type: 
  Country: None (occurrence: None)
  Receive Date: 20080825
  Receipt Date: 20080807
  Transmission Date: 20090109
  Serious: Yes (Death)
  Sender: FDA-Public Use
  Company Number: 2008S1010906

PATIENT
  Age: 53 Year
  Sex: Female

DRUGS (2)
  1. AMIODARONE HCL [Suspect]
     Indication: VENTRICULAR TACHYCARDIA
     Dosage: 300 MG; DAILY INTRAVENOUS, 600 MG; INTRAVENOUS; DAILY
     Route: 042
  2. IOMERON-150 [Suspect]
     Indication: ARTERIOGRAM CORONARY

REACTIONS (4)
  - CARDIOGENIC SHOCK [None]
  - GOITRE [None]
  - HYPERTHYROIDISM [None]
  - THYROTOXIC CRISIS [None]
